FAERS Safety Report 25864733 (Version 1)
Quarter: 2025Q3

REPORT INFORMATION
  Report Type: Spontaneous
  Country: EU (occurrence: EU)
  Receive Date: 20250930
  Receipt Date: 20250930
  Transmission Date: 20251021
  Serious: Yes (Other)
  Sender: TAKEDA
  Company Number: EU-TAKEDA-2025TUS084097

PATIENT
  Sex: Female

DRUGS (1)
  1. APADAMTASE ALFA [Suspect]
     Active Substance: APADAMTASE ALFA
     Indication: Product used for unknown indication

REACTIONS (2)
  - Low birth weight baby [Unknown]
  - Umbilical cord thrombosis [Unknown]
